FAERS Safety Report 4319896-7 (Version None)
Quarter: 2004Q1

REPORT INFORMATION
  Report Type: 
  Country: None (occurrence: None)
  Receive Date: 20040316
  Receipt Date: 20040304
  Transmission Date: 20041129
  Serious: Yes (Hospitalization)
  Sender: FDA-Public Use
  Company Number: 2004202069US

PATIENT
  Age: 54 Year
  Sex: Female

DRUGS (11)
  1. BEXTRA [Suspect]
     Dosage: 20 MG, QD, ORAL
     Route: 048
     Dates: start: 20010101
  2. ENBREL [Suspect]
     Indication: RHEUMATOID ARTHRITIS
     Dosage: 25 MG, SUBCUTANEOUS
     Route: 058
     Dates: start: 20030201, end: 20030409
  3. CALCITONIN (CALCITONIN) INHALER [Suspect]
     Dosage: 2 DF, QD, RESPIRATORY
     Route: 055
     Dates: start: 20000101
  4. WARFARIN SODIUM [Concomitant]
  5. CYANOCOBALAMIN [Concomitant]
  6. PAMIDRONATE DISODIUM  (PAMIDRONATE DISODIUM) [Concomitant]
  7. OMEPRAZOLE [Concomitant]
  8. METRONIDAZOLE [Concomitant]
  9. CIPROFLOXACIN HCL [Concomitant]
  10. DOXYCYCLINE [Concomitant]
  11. RANITIDINE HYDROCHLORIDE [Concomitant]

REACTIONS (4)
  - DISEASE RECURRENCE [None]
  - NEPHROLITHIASIS [None]
  - PLEURISY [None]
  - PULMONARY COCCIDIOIDES [None]
